FAERS Safety Report 10146017 (Version 2)
Quarter: 2014Q2

REPORT INFORMATION
  Report Type: Spontaneous
  Country: IT (occurrence: IT)
  Receive Date: 20140501
  Receipt Date: 20140527
  Transmission Date: 20141212
  Serious: Yes (Other)
  Sender: FDA-Public Use
  Company Number: PHHY2014IT052802

PATIENT
  Age: 28 Year
  Sex: Male

DRUGS (1)
  1. CERTICAN [Suspect]
     Indication: HEART TRANSPLANT
     Dosage: 0.75 MG, (?  TABLET, BID)
     Route: 048
     Dates: start: 201211

REACTIONS (3)
  - Blood oestrogen increased [Unknown]
  - Infertility [Unknown]
  - Oligospermia [Unknown]
